FAERS Safety Report 23534098 (Version 1)
Quarter: 2024Q1

REPORT INFORMATION
  Report Type: Spontaneous
  Country: US (occurrence: US)
  Receive Date: 20240216
  Receipt Date: 20240216
  Transmission Date: 20240410
  Serious: No
  Sender: FDA-Public Use
  Company Number: US-SANOFI-01939154

PATIENT
  Age: 10 Year
  Sex: Male

DRUGS (2)
  1. DUPIXENT [Suspect]
     Active Substance: DUPILUMAB
     Indication: Dermatitis atopic
     Dosage: 600 MG, 1X
     Route: 058
     Dates: start: 202311, end: 202311
  2. DUPIXENT [Suspect]
     Active Substance: DUPILUMAB
     Dosage: 300 MG, Q4W
     Route: 058
     Dates: start: 202312, end: 202312

REACTIONS (6)
  - Pharyngitis streptococcal [Unknown]
  - Mobility decreased [Unknown]
  - Neck pain [Unknown]
  - Eczema [Recovering/Resolving]
  - Drug ineffective [Recovering/Resolving]
  - Intercepted product storage error [Unknown]

NARRATIVE: CASE EVENT DATE: 20230101
